FAERS Safety Report 7315936-1 (Version None)
Quarter: 2011Q1

REPORT INFORMATION
  Report Type: 
  Country: None (occurrence: None)
  Receive Date: 20110225
  Receipt Date: 20110217
  Transmission Date: 20110831
  Serious: Yes (Death, Other)
  Sender: FDA-Public Use
  Company Number: US-AMGEN GMBH-QUU437451

PATIENT
  Age: 75 Year
  Sex: Male

DRUGS (16)
  1. NPLATE [Suspect]
     Indication: IDIOPATHIC THROMBOCYTOPENIC PURPURA
     Dosage: 340 A?G, UNK
     Dates: start: 20100519, end: 20100804
  2. SERTRALINE HYDROCHLORIDE [Concomitant]
  3. HYDROCHLOROTHIAZIDE [Concomitant]
  4. NPLATE [Suspect]
     Dosage: 340 A?G, UNK
     Dates: start: 20100519, end: 20100804
  5. OMEPRAZOLE [Concomitant]
  6. MEGESTROL ACETATE [Concomitant]
  7. NPLATE [Suspect]
     Dosage: 340 A?G, UNK
     Dates: start: 20100519, end: 20100804
  8. NPLATE [Suspect]
     Dosage: 340 A?G, UNK
     Dates: start: 20100519, end: 20100804
  9. NPLATE [Suspect]
     Dosage: 340 A?G, UNK
     Dates: start: 20100519, end: 20100804
  10. NPLATE [Suspect]
     Dosage: 340 A?G, UNK
     Dates: start: 20100519, end: 20100804
  11. POTASSIUM CHLORIDE [Concomitant]
  12. RIVASTIGIMINE [Concomitant]
  13. SILODOSIN [Concomitant]
  14. NPLATE [Suspect]
     Dosage: 340 A?G, UNK
     Dates: start: 20100519, end: 20100804
  15. NPLATE [Suspect]
     Dates: start: 20100519, end: 20100804
  16. LISINOPRIL [Concomitant]

REACTIONS (3)
  - DEMENTIA [None]
  - DEEP VEIN THROMBOSIS [None]
  - THROMBOCYTOPENIA [None]
